FAERS Safety Report 12812151 (Version 3)
Quarter: 2018Q3

REPORT INFORMATION
  Report Type: Spontaneous
  Country: US (occurrence: US)
  Receive Date: 20161005
  Receipt Date: 20180928
  Transmission Date: 20181010
  Serious: No
  Sender: FDA-Public Use
  Company Number: US-AMGEN-USASP2016080687

PATIENT
  Age: 77 Year
  Sex: Female

DRUGS (3)
  1. SYNTHROID [Concomitant]
     Active Substance: LEVOTHYROXINE SODIUM
     Dosage: UNK
  2. PREMARIN [Concomitant]
     Active Substance: ESTROGENS, CONJUGATED
     Dosage: UNK
  3. PROLIA [Suspect]
     Active Substance: DENOSUMAB
     Indication: MALABSORPTION
     Dosage: UNK UNK, Q6MO
     Route: 065

REACTIONS (12)
  - Artificial crown procedure [Unknown]
  - Tooth extraction [Unknown]
  - Parathyroid disorder [Unknown]
  - Malabsorption [Unknown]
  - Weight decreased [Unknown]
  - Blood calcium increased [Unknown]
  - Tooth disorder [Unknown]
  - Off label use [Unknown]
  - Swelling [Unknown]
  - Balance disorder [Unknown]
  - Bone density decreased [Unknown]
  - Hypertonic bladder [Unknown]

NARRATIVE: CASE EVENT DATE: 201507
